FAERS Safety Report 16724685 (Version 1)
Quarter: 2019Q3

REPORT INFORMATION
  Report Type: Spontaneous
  Country: US (occurrence: US)
  Receive Date: 20190821
  Receipt Date: 20190821
  Transmission Date: 20191005
  Serious: No
  Sender: FDA-Public Use
  Company Number: US-BAYER-2019-153248

PATIENT
  Sex: Female

DRUGS (2)
  1. DIPHENHYDRAMINE HYDROCHLORIDE. [Concomitant]
     Active Substance: DIPHENHYDRAMINE HYDROCHLORIDE
  2. ALEVE [Suspect]
     Active Substance: NAPROXEN SODIUM
     Indication: SCIATICA
     Dosage: 2 DF, BID
     Route: 048
     Dates: start: 20190813

REACTIONS (3)
  - Incorrect dose administered [None]
  - Rash erythematous [Unknown]
  - Rash macular [Unknown]

NARRATIVE: CASE EVENT DATE: 20190813
